FAERS Safety Report 6329513-2 (Version None)
Quarter: 2009Q3

REPORT INFORMATION
  Report Type: 
  Country: None (occurrence: None)
  Receive Date: 20090818
  Receipt Date: 20090515
  Transmission Date: 20100115
  Serious: No
  Sender: FDA-Public Use
  Company Number: WAES 0903USA04547

PATIENT
  Age: 66 Year
  Sex: Female
  Weight: 102.9665 kg

DRUGS (6)
  1. JANUVIA [Suspect]
     Indication: TYPE 2 DIABETES MELLITUS
     Dosage: PO
     Route: 048
  2. ADVAIR HFA [Concomitant]
  3. DIOVAN [Concomitant]
  4. SINGULAIR [Concomitant]
  5. XOLAIR [Concomitant]
  6. ALBUTEROL [Concomitant]

REACTIONS (1)
  - BRONCHOSPASM [None]
